FAERS Safety Report 23318629 (Version 2)
Quarter: 2024Q1

REPORT INFORMATION
  Report Type: Report from Study
  Country: PL (occurrence: PL)
  Receive Date: 20231220
  Receipt Date: 20240218
  Transmission Date: 20240409
  Serious: Yes (Other)
  Sender: FDA-Public Use
  Company Number: PL-AMGEN-POLSP2023221598

PATIENT
  Age: 60 Year
  Sex: Female

DRUGS (4)
  1. SOTORASIB [Suspect]
     Active Substance: SOTORASIB
     Indication: K-ras gene mutation
     Dosage: UNK/ RECEIVED A TOTAL OF 12 MONTHS OF SECOND-LINE TREATMENT WITH SOTORASIB
     Route: 065
     Dates: start: 2022
  2. SOTORASIB [Suspect]
     Active Substance: SOTORASIB
     Indication: Lung adenocarcinoma stage IV
  3. PEMETREXED [Concomitant]
     Active Substance: PEMETREXED
     Dosage: UNK
     Dates: start: 20210516
  4. CARBOPLATIN [Concomitant]
     Active Substance: CARBOPLATIN

REACTIONS (1)
  - Non-small cell lung cancer [Recovering/Resolving]

NARRATIVE: CASE EVENT DATE: 20230116
